FAERS Safety Report 8025366-5 (Version None)
Quarter: 2012Q1

REPORT INFORMATION
  Report Type: 
  Country: None (occurrence: None)
  Receive Date: 20120105
  Receipt Date: 20120104
  Transmission Date: 20120608
  Serious: Yes (Other)
  Sender: FDA-Public Use
  Company Number: FI-PFIZER INC-2012001744

PATIENT
  Age: 48 Year
  Sex: Female

DRUGS (4)
  1. VENTOLIN [Concomitant]
     Indication: ASTHMA
     Dosage: 0.1 MG/DOSE, AS NEEDED
     Route: 055
  2. PULMICORT [Concomitant]
     Indication: ASTHMA
     Dosage: 200 UG, 2X/DAY
     Route: 055
  3. ATARAX [Concomitant]
     Indication: HYPERSENSITIVITY
     Dosage: 25MG, UNK
     Route: 048
  4. VARENICLINE TARTRATE [Suspect]
     Indication: SMOKING CESSATION THERAPY
     Dosage: 0.5MG AND 1MG, AT UNSPECIFIED DOSE
     Route: 048
     Dates: start: 20111101, end: 20111101

REACTIONS (6)
  - CONFUSIONAL STATE [None]
  - HYPOAESTHESIA [None]
  - AMNESIA [None]
  - DELUSION [None]
  - AGGRESSION [None]
  - MUSCLE TIGHTNESS [None]
